FAERS Safety Report 11577758 (Version 1)
Quarter: 2015Q3

REPORT INFORMATION
  Report Type: Spontaneous
  Country: GB (occurrence: GB)
  Receive Date: 20150930
  Receipt Date: 20150930
  Transmission Date: 20151125
  Serious: Yes (Other)
  Sender: FDA-Public Use
  Company Number: GB-SHIRE-GB201511893

PATIENT
  Age: 8 Year
  Sex: Male
  Weight: 28.7 kg

DRUGS (1)
  1. ELVANSE [Suspect]
     Active Substance: LISDEXAMFETAMINE DIMESYLATE
     Indication: PRODUCT USED FOR UNKNOWN INDICATION
     Dosage: 30 MG, UNKNOWN
     Route: 048
     Dates: start: 20141024, end: 20141117

REACTIONS (2)
  - Depression [Recovered/Resolved]
  - Asocial behaviour [Recovered/Resolved]

NARRATIVE: CASE EVENT DATE: 2014
